FAERS Safety Report 6974551-X (Version None)
Quarter: 2010Q3

REPORT INFORMATION
  Report Type: 
  Country: None (occurrence: None)
  Receive Date: 20100909
  Receipt Date: 20080818
  Transmission Date: 20110219
  Serious: No
  Sender: FDA-Public Use
  Company Number: US-WYE-H05651908

PATIENT
  Age: 58 Year
  Sex: Male
  Weight: 81.72 kg

DRUGS (1)
  1. ADVIL ALLERGY SINUS [Suspect]
     Indication: HYPERSENSITIVITY
     Route: 048
     Dates: start: 20080816, end: 20080816

REACTIONS (3)
  - NAUSEA [None]
  - SOMNOLENCE [None]
  - TREMOR [None]
